FAERS Safety Report 6038453-8 (Version None)
Quarter: 2009Q1

REPORT INFORMATION
  Report Type: 
  Country: None (occurrence: None)
  Receive Date: 20090115
  Receipt Date: 20090106
  Transmission Date: 20090719
  Serious: Yes (Other)
  Sender: FDA-Public Use
  Company Number: GB-JNJFOC-20081007085

PATIENT
  Age: 69 Year
  Sex: Female

DRUGS (8)
  1. REMICADE [Suspect]
     Indication: RHEUMATOID ARTHRITIS
     Route: 042
  2. AMITRIPTYLINE HCL [Concomitant]
  3. CELEBREX [Concomitant]
  4. ACETAMINOPHEN WITH PROPOXYPHENE HCL TAB [Concomitant]
  5. FOLIC ACID [Concomitant]
  6. HRT [Concomitant]
  7. METHOTREXATE [Concomitant]
  8. LANSOPRAZOLE [Concomitant]

REACTIONS (2)
  - BREAST CANCER [None]
  - CARCINOMA IN SITU OF SKIN [None]
